FAERS Safety Report 15954170 (Version 8)
Quarter: 2019Q1

REPORT INFORMATION
  Report Type: Report from Study
  Country: CA (occurrence: CA)
  Receive Date: 20190213
  Receipt Date: 20190322
  Transmission Date: 20190417
  Serious: Yes (Other)
  Sender: FDA-Public Use
  Company Number: CA-BIOGEN-2018BI00600408

PATIENT
  Sex: Female

DRUGS (3)
  1. TYSABRI [Suspect]
     Active Substance: NATALIZUMAB
     Dosage: INFUSED FOR OVER 1 HRS
     Route: 050
     Dates: start: 20160926
  2. TYSABRI [Suspect]
     Active Substance: NATALIZUMAB
     Indication: MULTIPLE SCLEROSIS
     Dosage: INFUSED FOR OVER 1 HOUR
     Route: 050
     Dates: start: 20160910
  3. TYSABRI [Suspect]
     Active Substance: NATALIZUMAB
     Dosage: INFUSED FOR OVER 1 HOUR
     Route: 050
     Dates: start: 20160920

REACTIONS (5)
  - Foetal cardiac disorder [Unknown]
  - Postoperative wound complication [Unknown]
  - Postoperative wound infection [Not Recovered/Not Resolved]
  - Complication of delivery [Recovered/Resolved]
  - Maternal exposure during pregnancy [Recovered/Resolved]
